FAERS Safety Report 9437246 (Version 2)
Quarter: 2013Q3

REPORT INFORMATION
  Report Type: Spontaneous
  Country: DK (occurrence: DK)
  Receive Date: 20130802
  Receipt Date: 20130923
  Transmission Date: 20140515
  Serious: Yes (Hospitalization)
  Sender: FDA-Public Use
  Company Number: PHHY2013DK082267

PATIENT
  Age: 57 Year
  Sex: Male

DRUGS (3)
  1. ZOMETA [Suspect]
     Indication: METASTASES TO BONE
     Dosage: 4 MG/100 ML, ONCE EVERY THREE MONTH
     Route: 042
     Dates: start: 2009, end: 2011
  2. XGEVA [Suspect]
     Indication: METASTASES TO BONE
     Dosage: 120 MG, UNK
     Route: 058
     Dates: start: 201106
  3. XGEVA [Suspect]
     Dosage: UNK UKN, UNK
     Route: 058
     Dates: start: 201212

REACTIONS (1)
  - Osteonecrosis of jaw [Recovered/Resolved with Sequelae]
